FAERS Safety Report 16543495 (Version 1)
Quarter: 2019Q3

REPORT INFORMATION
  Report Type: Spontaneous
  Country: US (occurrence: US)
  Receive Date: 20190709
  Receipt Date: 20190709
  Transmission Date: 20191004
  Serious: Yes (Hospitalization, Other)
  Sender: FDA-Public Use
  Company Number: US-GLAXOSMITHKLINE-US2019GSK120715

PATIENT
  Age: 62 Year
  Sex: Male

DRUGS (1)
  1. ATOVAQUONE + PROGUANIL HYDROCHLORIDE [Suspect]
     Active Substance: ATOVAQUONE\PROGUANIL HYDROCHLORIDE
     Indication: MALARIA PROPHYLAXIS
     Dosage: UNK, 1D

REACTIONS (16)
  - Faeces pale [Recovered/Resolved]
  - Blood bilirubin increased [Recovered/Resolved]
  - Ocular icterus [Recovered/Resolved]
  - Pruritus [Recovered/Resolved]
  - Chromaturia [Recovered/Resolved]
  - Cholestasis [Recovered/Resolved]
  - Fatigue [Recovered/Resolved]
  - Weight decreased [Recovered/Resolved]
  - Pruritus generalised [Recovered/Resolved]
  - Aspartate aminotransferase increased [Recovered/Resolved]
  - Lethargy [Recovered/Resolved]
  - Vanishing bile duct syndrome [Recovered/Resolved]
  - Scratch [Recovered/Resolved]
  - Alanine aminotransferase increased [Recovered/Resolved]
  - Jaundice [Recovered/Resolved]
  - Drug-induced liver injury [Recovered/Resolved]
